FAERS Safety Report 4418113-7 (Version None)
Quarter: 2004Q3

REPORT INFORMATION
  Report Type: 
  Country: None (occurrence: None)
  Receive Date: 20040805
  Receipt Date: 20040805
  Transmission Date: 20050211
  Serious: Yes (Life-Threatening)
  Sender: FDA-Public Use
  Company Number: None

PATIENT
  Age: 22 Year
  Sex: Female
  Weight: 68.0396 kg

DRUGS (7)
  1. NOVOLOG [Suspect]
     Indication: DIABETES MELLITUS INSULIN-DEPENDENT
     Dosage: 25U QHR SC
     Route: 058
     Dates: start: 20040803
  2. LISINOPRIL [Concomitant]
  3. PAXIL [Concomitant]
  4. ADALAT [Concomitant]
  5. SMZ-TMP [Concomitant]
  6. ORTHO TRI-CYCLEN [Concomitant]
  7. LANTUS [Concomitant]

REACTIONS (2)
  - BLOOD GLUCOSE INCREASED [None]
  - PHARMACEUTICAL PRODUCT COMPLAINT [None]
